FAERS Safety Report 11854095 (Version 2)
Quarter: 2016Q1

REPORT INFORMATION
  Report Type: Report from Study
  Country: CA (occurrence: CA)
  Receive Date: 20151219
  Receipt Date: 20160121
  Transmission Date: 20160526
  Serious: Yes (Other)
  Sender: FDA-Public Use
  Company Number: CA-AMGEN-CANSL2015133974

PATIENT
  Sex: Female

DRUGS (1)
  1. XGEVA [Suspect]
     Active Substance: DENOSUMAB
     Indication: PRODUCT USED FOR UNKNOWN INDICATION
     Dosage: 120 MG (1.70 ML), QMO
     Route: 065
     Dates: start: 20140724

REACTIONS (13)
  - Condition aggravated [Unknown]
  - Toothache [Unknown]
  - Bone pain [Unknown]
  - Large intestinal polypectomy [Unknown]
  - Asthenia [Recovered/Resolved]
  - Foreign body [Not Recovered/Not Resolved]
  - Mobility decreased [Unknown]
  - Bladder cancer recurrent [Unknown]
  - Influenza [Unknown]
  - Malaise [Recovered/Resolved]
  - Activities of daily living impaired [Recovered/Resolved]
  - Blood pressure abnormal [Unknown]
  - Fatigue [Recovered/Resolved]

NARRATIVE: CASE EVENT DATE: 2015
